FAERS Safety Report 23223179 (Version 2)
Quarter: 2023Q4

REPORT INFORMATION
  Report Type: Spontaneous
  Country: US (occurrence: US)
  Receive Date: 20231123
  Receipt Date: 20231211
  Transmission Date: 20240110
  Serious: Yes (Other)
  Sender: FDA-Public Use
  Company Number: US-009507513-2311USA007032

PATIENT
  Sex: Male

DRUGS (1)
  1. KEYTRUDA [Suspect]
     Active Substance: PEMBROLIZUMAB
     Indication: Lung neoplasm malignant
     Dosage: 400 MILLIGRAM, EVERY 6 WEEKS
     Dates: start: 202101, end: 20211209

REACTIONS (7)
  - Transient ischaemic attack [Recovered/Resolved]
  - Transient ischaemic attack [Not Recovered/Not Resolved]
  - Transient ischaemic attack [Recovered/Resolved]
  - Transient ischaemic attack [Not Recovered/Not Resolved]
  - Carotid artery aneurysm [Not Recovered/Not Resolved]
  - Contusion [Recovered/Resolved]
  - Rash [Recovered/Resolved]

NARRATIVE: CASE EVENT DATE: 20230101
